FAERS Safety Report 7397799-1 (Version None)
Quarter: 2011Q2

REPORT INFORMATION
  Report Type: 
  Country: None (occurrence: None)
  Receive Date: 20110401
  Receipt Date: 20110401
  Transmission Date: 20111010
  Serious: Yes (Other)
  Sender: FDA-Public Use
  Company Number: None

PATIENT
  Sex: Male
  Weight: 22 kg

DRUGS (8)
  1. TYVASO [Suspect]
     Indication: PULMONARY HYPERTENSION
     Dosage: 36 MCG QID INHAL
     Route: 055
     Dates: start: 20100910, end: 20101208
  2. OXYGEN THERAPY [Concomitant]
  3. LETAIRIS [Concomitant]
  4. MULTIPLE VITAMINS-MINERALS [Concomitant]
  5. TADALAFIL [Concomitant]
  6. FLONASE [Concomitant]
  7. CETIRIZINE HCL [Concomitant]
  8. IRON SUPPLEMENT [Concomitant]

REACTIONS (2)
  - OXYGEN SATURATION DECREASED [None]
  - BRONCHIAL HYPERREACTIVITY [None]
